FAERS Safety Report 25810244 (Version 2)
Quarter: 2025Q3

REPORT INFORMATION
  Report Type: Spontaneous
  Country: JP (occurrence: JP)
  Receive Date: 20250917
  Receipt Date: 20250924
  Transmission Date: 20251021
  Serious: Yes (Hospitalization, Other)
  Sender: LEO PHARM
  Company Number: JP-LEO Pharma-382719

PATIENT
  Age: 64 Year
  Sex: Male

DRUGS (1)
  1. ENSTILAR [Suspect]
     Active Substance: BETAMETHASONE DIPROPIONATE\CALCIPOTRIENE HYDRATE
     Indication: Psoriasis

REACTIONS (2)
  - Myocardial infarction [Unknown]
  - Generalised pustular psoriasis [Recovered/Resolved]
